FAERS Safety Report 17588350 (Version 2)
Quarter: 2020Q4

REPORT INFORMATION
  Report Type: Spontaneous
  Country: US (occurrence: US)
  Receive Date: 20200326
  Receipt Date: 20201124
  Transmission Date: 20210113
  Serious: Yes (Other)
  Sender: FDA-Public Use
  Company Number: US-TAKEDA-2020TUS015584

PATIENT
  Sex: Female

DRUGS (1)
  1. NINLARO [Suspect]
     Active Substance: IXAZOMIB CITRATE
     Indication: PLASMA CELL MYELOMA
     Dosage: 4 MILLIGRAM, 1/WEEK
     Route: 065
     Dates: start: 20190926

REACTIONS (6)
  - Vulvovaginal pruritus [Unknown]
  - Vaginal infection [Unknown]
  - Pollakiuria [Unknown]
  - Multiple organ dysfunction syndrome [Not Recovered/Not Resolved]
  - Bone disorder [Not Recovered/Not Resolved]
  - Visual impairment [Not Recovered/Not Resolved]
